FAERS Safety Report 6551041-X (Version None)
Quarter: 2010Q1

REPORT INFORMATION
  Report Type: 
  Country: None (occurrence: None)
  Receive Date: 20100125
  Receipt Date: 20100112
  Transmission Date: 20100710
  Serious: Yes (Hospitalization)
  Sender: FDA-Public Use
  Company Number: DE-GENENTECH-295171

PATIENT
  Sex: Male

DRUGS (9)
  1. RANIBIZUMAB [Suspect]
     Indication: MACULAR DEGENERATION
     Dosage: UNK
     Route: 031
     Dates: start: 20090707, end: 20091111
  2. DEXAMYTREX [Concomitant]
     Indication: DRUG USE FOR UNKNOWN INDICATION
  3. FLOXAL [Concomitant]
     Indication: DRUG USE FOR UNKNOWN INDICATION
  4. BENZALKONIUM CHLORIDE [Concomitant]
     Indication: DRUG USE FOR UNKNOWN INDICATION
  5. COTAZYM [Concomitant]
     Indication: DRUG USE FOR UNKNOWN INDICATION
  6. CONCOR [Concomitant]
     Indication: DRUG USE FOR UNKNOWN INDICATION
     Dosage: 5 MG, UNK
  7. TRENTAL [Concomitant]
     Indication: DRUG USE FOR UNKNOWN INDICATION
  8. VITALUX PLUS (GERMANY) [Concomitant]
     Indication: DRUG USE FOR UNKNOWN INDICATION
  9. MEDICATION (UNK INGREDIENT) [Concomitant]
     Indication: DRUG USE FOR UNKNOWN INDICATION

REACTIONS (4)
  - CATARACT TRAUMATIC [None]
  - RETINAL HAEMORRHAGE [None]
  - RETINAL PIGMENT EPITHELIAL TEAR [None]
  - VISUAL ACUITY REDUCED [None]
